FAERS Safety Report 9869188 (Version 3)
Quarter: 2014Q2

REPORT INFORMATION
  Report Type: Spontaneous
  Country: US (occurrence: US)
  Receive Date: 20140205
  Receipt Date: 20140408
  Transmission Date: 20141212
  Serious: Yes (Hospitalization, Other)
  Sender: FDA-Public Use
  Company Number: US-009507513-1401USA013330

PATIENT
  Age: 65 Year
  Sex: Female
  Weight: 82.54 kg

DRUGS (9)
  1. DULERA [Suspect]
     Indication: ASTHMA
     Dosage: 1 PUFF, TWICE A DAY
     Route: 055
     Dates: start: 201312
  2. DULERA [Suspect]
     Indication: ASTHMA
     Dosage: UNK
     Route: 048
  3. DULERA [Suspect]
     Indication: CHRONIC OBSTRUCTIVE PULMONARY DISEASE
  4. SINGULAIR [Concomitant]
     Dosage: UNK
     Route: 048
  5. FLUTICASONE PROPIONATE [Concomitant]
     Dosage: UNK
  6. MONTELUKAST SODIUM [Concomitant]
     Dosage: UNK
     Route: 048
  7. PROAIR HFA [Concomitant]
     Dosage: UNK
  8. ALBUTEROL [Suspect]
     Indication: CHRONIC OBSTRUCTIVE PULMONARY DISEASE
     Dosage: 2 DF, Q4H
     Dates: start: 201401
  9. ALBUTEROL [Suspect]
     Indication: ASTHMA

REACTIONS (11)
  - Chronic obstructive pulmonary disease [Unknown]
  - Aortic aneurysm [Unknown]
  - Feeling abnormal [Not Recovered/Not Resolved]
  - Tachycardia [Recovered/Resolved]
  - Headache [Recovered/Resolved]
  - Asthma [Not Recovered/Not Resolved]
  - Drug ineffective [Not Recovered/Not Resolved]
  - Product quality issue [Unknown]
  - Drug dose omission [Unknown]
  - Underdose [Unknown]
  - Incorrect route of drug administration [Unknown]
